FAERS Safety Report 9620644 (Version 2)
Quarter: 2017Q4

REPORT INFORMATION
  Report Type: Report from Study
  Country: PH (occurrence: PH)
  Receive Date: 20131015
  Receipt Date: 20171027
  Transmission Date: 20180321
  Serious: Yes (Hospitalization)
  Sender: FDA-Public Use
  Company Number: PH-MERCK-1310PHL005768

PATIENT
  Sex: Male

DRUGS (3)
  1. JANUVIA [Suspect]
     Active Substance: SITAGLIPTIN PHOSPHATE
     Indication: DIABETES MELLITUS
     Dosage: 50 MG, QD
     Route: 048
     Dates: start: 201304, end: 201409
  2. JANUVIA [Suspect]
     Active Substance: SITAGLIPTIN PHOSPHATE
     Dosage: 50 MG, QD
     Route: 048
     Dates: start: 201511
  3. JANUMET [Suspect]
     Active Substance: METFORMIN HYDROCHLORIDE\SITAGLIPTIN PHOSPHATE
     Indication: DIABETES MELLITUS
     Dosage: 1 DF (STENGTH 50/500 MG) ONCE A DAY
     Dates: start: 201409, end: 201511

REACTIONS (4)
  - Hypertension [Recovered/Resolved with Sequelae]
  - Inappropriate schedule of drug administration [Unknown]
  - Blood cholesterol increased [Recovered/Resolved with Sequelae]
  - Blood glucose increased [Unknown]

NARRATIVE: CASE EVENT DATE: 201409
